FAERS Safety Report 9699081 (Version 2)
Quarter: 2013Q4

REPORT INFORMATION
  Report Type: Spontaneous
  Country: GB (occurrence: GB)
  Receive Date: 20131120
  Receipt Date: 20131127
  Transmission Date: 20140711
  Serious: Yes (Other)
  Sender: FDA-Public Use
  Company Number: GB-PFIZER INC-2013329461

PATIENT
  Sex: Male

DRUGS (1)
  1. EPANUTIN [Suspect]

REACTIONS (1)
  - Convulsion [Unknown]
